FAERS Safety Report 7539784-2 (Version None)
Quarter: 2011Q2

REPORT INFORMATION
  Report Type: 
  Country: None (occurrence: None)
  Receive Date: 20110610
  Receipt Date: 20110531
  Transmission Date: 20111010
  Serious: Yes (Hospitalization)
  Sender: FDA-Public Use
  Company Number: PHHY2011CA48453

PATIENT
  Sex: Female

DRUGS (2)
  1. EFFEXOR [Suspect]
  2. CLOZAPINE [Suspect]
     Indication: SCHIZOPHRENIA
     Dosage: 3000 MG
     Dates: start: 20101130

REACTIONS (1)
  - TOXICITY TO VARIOUS AGENTS [None]
